FAERS Safety Report 21659137 (Version 2)
Quarter: 2022Q4

REPORT INFORMATION
  Report Type: Spontaneous
  Country: JP (occurrence: JP)
  Receive Date: 20221129
  Receipt Date: 20221208
  Transmission Date: 20230113
  Serious: No
  Sender: FDA-Public Use
  Company Number: JP-BAYER-2022A160820

PATIENT
  Age: 17 Year
  Sex: Male

DRUGS (1)
  1. STIVARGA [Suspect]
     Active Substance: REGORAFENIB
     Indication: Osteosarcoma recurrent
     Dosage: DAILY DOSE 80MG
     Route: 048

REACTIONS (5)
  - Palmar-plantar erythrodysaesthesia syndrome [None]
  - Diarrhoea [None]
  - Sensory disturbance [None]
  - Arthralgia [None]
  - Off label use [None]
